FAERS Safety Report 5542057-0 (Version None)
Quarter: 2007Q4

REPORT INFORMATION
  Report Type: 
  Country: None (occurrence: None)
  Receive Date: 20071210
  Receipt Date: 20070905
  Transmission Date: 20080405
  Serious: Yes (Other)
  Sender: FDA-Public Use
  Company Number: US-ASTRAZENECA-2007UW02044

PATIENT
  Sex: Female

DRUGS (3)
  1. SEROQUEL [Suspect]
     Route: 048
     Dates: start: 20030201, end: 20041019
  2. BUSPIRONE HCL [Concomitant]
     Dosage: 15-30 MG
     Dates: start: 20010101, end: 20050919
  3. TRAZODONE HCL [Concomitant]
     Dates: start: 20010427, end: 20061019

REACTIONS (3)
  - ABORTION SPONTANEOUS [None]
  - SKIN DISORDER [None]
  - TYPE 1 DIABETES MELLITUS [None]
